FAERS Safety Report 5391429-6 (Version None)
Quarter: 2007Q3

REPORT INFORMATION
  Report Type: 
  Country: None (occurrence: None)
  Receive Date: 20070719
  Receipt Date: 20070710
  Transmission Date: 20080115
  Serious: Yes (Death, Hospitalization)
  Sender: FDA-Public Use
  Company Number: NL-ROCHE-487021

PATIENT
  Age: 59 Year
  Sex: Male

DRUGS (6)
  1. CAPECITABINE [Suspect]
     Dosage: GIVEN ON DAYS ONE TO FOURTEEN OF EACH THREE-WEEK-CYCLE. START OF FIFTH CYCLE: 13 APRIL 2007.
     Route: 048
     Dates: start: 20061218
  2. BEVACIZUMAB [Suspect]
     Dosage: GIVEN ON DAY ONE OF EACH THREE-WEEK-CYCLE. START OF FIFTH CYCLE: 13 APRIL 2007.
     Route: 042
     Dates: start: 20061218
  3. OXALIPLATIN [Suspect]
     Dosage: GIVEN ON DAY ONE OF EACH THREE-WEEK-CYCLE. START OF FIFTH CYCLE: 13 APRIL 2007.
     Route: 042
     Dates: start: 20061218
  4. CETUXIMAB [Suspect]
     Dosage: LOADING DOSE GIVEN ON DAY ONE OF FIRST CYCLE.
     Route: 042
     Dates: start: 20061218, end: 20061218
  5. CETUXIMAB [Suspect]
     Dosage: MAINTENANCE DOSE GIVEN ON DAYS ONE, EIGHT AND FIFTEEN OF EVERY THREE-WEEK-CYCLE. START OF FIFTH CYC+
     Route: 042
  6. METOCLOPRAMIDE [Concomitant]
     Route: 054

REACTIONS (5)
  - DEHYDRATION [None]
  - DIARRHOEA [None]
  - HYPOMAGNESAEMIA [None]
  - NAUSEA [None]
  - VOMITING [None]
